FAERS Safety Report 10393497 (Version 7)
Quarter: 2014Q4

REPORT INFORMATION
  Report Type: Spontaneous
  Country: IE (occurrence: IE)
  Receive Date: 20140819
  Receipt Date: 20141205
  Transmission Date: 20150528
  Serious: Yes (Death, Hospitalization, Other)
  Sender: FDA-Public Use
  Company Number: IE-PFIZER INC-2014230524

PATIENT
  Age: 84 Year
  Sex: Male

DRUGS (8)
  1. CITALOPRAM [Suspect]
     Active Substance: CITALOPRAM HYDROBROMIDE
     Indication: DEPRESSION
     Dosage: 10 MG, 1X/DAY
     Route: 048
     Dates: end: 20140501
  2. BUTRANS [Concomitant]
     Active Substance: BUPRENORPHINE
     Dosage: 5 MCG/ HOUR
     Dates: start: 201310, end: 201402
  3. ELIQUIS [Suspect]
     Active Substance: APIXABAN
     Indication: CEREBROVASCULAR ACCIDENT PROPHYLAXIS
     Dosage: 5 MG, 2X/DAY
     Route: 048
     Dates: end: 20140501
  4. KEPPRA [Suspect]
     Active Substance: LEVETIRACETAM
     Dosage: 250 MG, 2X/DAY
     Route: 048
     Dates: end: 20140501
  5. FUROSEMIDE. [Concomitant]
     Active Substance: FUROSEMIDE
     Dosage: UNK
  6. LACTULOSE. [Concomitant]
     Active Substance: LACTULOSE
     Indication: CONSTIPATION
  7. ATORVASTATIN CALCIUM. [Suspect]
     Active Substance: ATORVASTATIN CALCIUM
     Indication: HYPERCHOLESTEROLAEMIA
     Dosage: 40 MG, DAILY
     Route: 048
     Dates: end: 20140501
  8. ESOMEPRAZOLE MAGNESIUM. [Suspect]
     Active Substance: ESOMEPRAZOLE MAGNESIUM
     Dosage: 40 MG, 1X/DAY
     Route: 048
     Dates: end: 20140501

REACTIONS (2)
  - Acute hepatic failure [Fatal]
  - Renal impairment [Fatal]

NARRATIVE: CASE EVENT DATE: 20140501
